FAERS Safety Report 20961182 (Version 2)
Quarter: 2022Q3

REPORT INFORMATION
  Report Type: Spontaneous
  Country: US (occurrence: US)
  Receive Date: 20220615
  Receipt Date: 20220701
  Transmission Date: 20221027
  Serious: Yes (Death)
  Sender: FDA-Public Use
  Company Number: US-TEVA-2022-US-2045634

PATIENT
  Age: 31 Year
  Sex: Female

DRUGS (2)
  1. BUSULFAN [Suspect]
     Active Substance: BUSULFAN
     Indication: Sickle cell disease
     Route: 065
  2. BETIBEGLOGENE AUTOTEMCEL [Suspect]
     Active Substance: BETIBEGLOGENE AUTOTEMCEL
     Indication: Sickle cell disease
     Route: 065

REACTIONS (1)
  - Acute myeloid leukaemia [Fatal]

NARRATIVE: CASE EVENT DATE: 20210201
